FAERS Safety Report 16618399 (Version 1)
Quarter: 2019Q3

REPORT INFORMATION
  Report Type: Report from Study
  Country: IL (occurrence: IL)
  Receive Date: 20190723
  Receipt Date: 20190723
  Transmission Date: 20191004
  Serious: Yes (Hospitalization)
  Sender: FDA-Public Use
  Company Number: IL-TAKEDA-2019TUS006807

PATIENT
  Age: 46 Year
  Sex: Male

DRUGS (3)
  1. RAFASSAL                           /00000301/ [Concomitant]
     Active Substance: AMINOSALICYLIC ACID
     Dosage: 1 MILLIGRAM
  2. VEDOLIZUMAB [Suspect]
     Active Substance: VEDOLIZUMAB
     Indication: CROHN^S DISEASE
     Dosage: 300 MILLIGRAM, Q8WEEKS
     Route: 042
     Dates: start: 20081122, end: 20190201
  3. PREDNISONE. [Concomitant]
     Active Substance: PREDNISONE
     Dosage: 40 MILLIGRAM

REACTIONS (2)
  - Crohn^s disease [Not Recovered/Not Resolved]
  - Colectomy [Recovering/Resolving]

NARRATIVE: CASE EVENT DATE: 20190514
